FAERS Safety Report 8019060-4 (Version None)
Quarter: 2012Q1

REPORT INFORMATION
  Report Type: 
  Country: None (occurrence: None)
  Receive Date: 20120103
  Receipt Date: 20111230
  Transmission Date: 20120608
  Serious: Yes (Death)
  Sender: FDA-Public Use
  Company Number: US-ASTRAZENECA-2011SE16812

PATIENT
  Age: 25429 Day
  Sex: Male

DRUGS (6)
  1. HYDRALAZINE HCL [Concomitant]
  2. ATACAND [Suspect]
     Indication: HYPERTENSION
     Route: 048
     Dates: start: 20070522
  3. LASIX [Concomitant]
     Dates: start: 20100520
  4. ASPIRIN [Concomitant]
     Dates: start: 20070101, end: 20101119
  5. COUMADIN [Concomitant]
  6. ATENOLOL [Concomitant]
     Dates: start: 20100520, end: 20101119

REACTIONS (1)
  - DEATH [None]
